FAERS Safety Report 4934209-5 (Version None)
Quarter: 2006Q1

REPORT INFORMATION
  Report Type: 
  Country: None (occurrence: None)
  Receive Date: 20060303
  Receipt Date: 20060223
  Transmission Date: 20060701
  Serious: Yes (Congenital Anomaly)
  Sender: FDA-Public Use
  Company Number: ZONI002275

PATIENT
  Sex: Male
  Weight: 2.86 kg

DRUGS (2)
  1. ZONEGRAN [Suspect]
     Indication: EPILEPSY
     Dosage: 400 MG, TRANSPLACENTAL
     Route: 064
     Dates: start: 20040716, end: 20050323
  2. DEPAKOTE [Suspect]
     Indication: EPILEPSY
     Dosage: 1000 MG, TRANSPLACENTAL
     Route: 064
     Dates: start: 20040716, end: 20040824

REACTIONS (4)
  - DRUG EXPOSURE DURING PREGNANCY [None]
  - FOETAL CARDIAC DISORDER [None]
  - FOETAL DISORDER [None]
  - LUNG DISORDER [None]
